FAERS Safety Report 25387226 (Version 1)
Quarter: 2025Q2

REPORT INFORMATION
  Report Type: Spontaneous
  Country: NL (occurrence: NL)
  Receive Date: 20250602
  Receipt Date: 20250602
  Transmission Date: 20250716
  Serious: Yes (Hospitalization)
  Sender: ALEXION PHARMACEUTICALS
  Company Number: None

PATIENT
  Age: 75 Year
  Weight: 86 kg

DRUGS (16)
  1. DAPAGLIFLOZIN [Suspect]
     Active Substance: DAPAGLIFLOZIN
     Indication: Diuretic therapy
     Dosage: 1X PER DAG 1 STUK
  2. FUROSEMIDE [Suspect]
     Active Substance: FUROSEMIDE
     Indication: Diuretic therapy
     Dosage: 1X PER DAG 1
  3. PANTOPRAZOLE SODIUM [Concomitant]
     Active Substance: PANTOPRAZOLE SODIUM
  4. BUDESONIDE [Concomitant]
     Active Substance: BUDESONIDE
  5. CALCIUM CARBONATE [Concomitant]
     Active Substance: CALCIUM CARBONATE
  6. APIXABAN [Concomitant]
     Active Substance: APIXABAN
  7. DIGOXIN [Concomitant]
     Active Substance: DIGOXIN
  8. BUMETANIDE [Concomitant]
     Active Substance: BUMETANIDE
  9. METOPROLOL [Concomitant]
     Active Substance: METOPROLOL
  10. SIMVASTATIN [Concomitant]
     Active Substance: SIMVASTATIN
  11. COSMETICS [Concomitant]
     Active Substance: COSMETICS
  12. Fusidinezuur [Concomitant]
  13. TRIAMCINOLONE ACETONIDE [Concomitant]
     Active Substance: TRIAMCINOLONE ACETONIDE
  14. AZATHIOPRINE [Concomitant]
     Active Substance: AZATHIOPRINE
  15. AZATHIOPRINE [Concomitant]
     Active Substance: AZATHIOPRINE
  16. ALENDRONIC ACID [Concomitant]
     Active Substance: ALENDRONIC ACID

REACTIONS (3)
  - Product substitution issue [Unknown]
  - Dermatitis exfoliative [Unknown]
  - Drug reaction with eosinophilia and systemic symptoms [Unknown]
